FAERS Safety Report 9708807 (Version 1)
Quarter: 2013Q4

REPORT INFORMATION
  Report Type: Spontaneous
  Country: US (occurrence: US)
  Receive Date: 20131125
  Receipt Date: 20131125
  Transmission Date: 20140711
  Serious: Yes (Other)
  Sender: FDA-Public Use
  Company Number: CHPA2013US017495

PATIENT
  Sex: Female

DRUGS (2)
  1. MAALOX ANTACID/ANTIGAS MAX LIQ UNKNOWN [Suspect]
     Indication: GASTRIC ULCER HAEMORRHAGE
     Dosage: 3 TBSP; Q4H
     Route: 048
     Dates: start: 1993
  2. BENEFIBER UNKNOWN [Suspect]
     Indication: PRODUCT USED FOR UNKNOWN INDICATION
     Route: 065

REACTIONS (5)
  - Gastric ulcer [Not Recovered/Not Resolved]
  - Condition aggravated [Unknown]
  - Dyspepsia [Unknown]
  - Incorrect drug administration duration [Unknown]
  - Off label use [Unknown]
